FAERS Safety Report 9889133 (Version 1)
Quarter: 2014Q1

REPORT INFORMATION
  Report Type: Spontaneous
  Country: DK (occurrence: FR)
  Receive Date: 20140211
  Receipt Date: 20140211
  Transmission Date: 20141002
  Serious: Yes (Hospitalization)
  Sender: FDA-Public Use
  Company Number: FR-FRI-1000054115

PATIENT
  Age: 82 Year
  Sex: Female

DRUGS (2)
  1. ESCITALOPRAM [Suspect]
     Dosage: 1 DF
     Route: 048
     Dates: end: 20131222
  2. KARDEGIC [Interacting]
     Dosage: 1 DF
     Route: 048
     Dates: end: 20131219

REACTIONS (3)
  - Headache [Recovered/Resolved]
  - Cerebral haematoma [Recovering/Resolving]
  - Drug interaction [Recovering/Resolving]
